FAERS Safety Report 7745851-0 (Version None)
Quarter: 2011Q3

REPORT INFORMATION
  Report Type: 
  Country: None (occurrence: None)
  Receive Date: 20110831
  Receipt Date: 20110825
  Transmission Date: 20111222
  Serious: Yes (Other)
  Sender: FDA-Public Use
  Company Number: 2011SP010543

PATIENT
  Age: 61 Year
  Sex: Male
  Weight: 63 kg

DRUGS (2)
  1. REBETOL [Suspect]
     Indication: HEPATITIS C
     Dosage: 600 MG, QD, PO
     Route: 048
     Dates: start: 20100904
  2. PEG-INTRON [Suspect]
     Indication: HEPATITIS C
     Dosage: 100 MCG, QW, SC
     Route: 058
     Dates: start: 20100904

REACTIONS (4)
  - PANNICULITIS [None]
  - SUBCUTANEOUS ABSCESS [None]
  - INJECTION SITE NECROSIS [None]
  - INJECTION SITE ERYTHEMA [None]
